FAERS Safety Report 15567038 (Version 3)
Quarter: 2019Q1

REPORT INFORMATION
  Report Type: Spontaneous
  Country: US (occurrence: US)
  Receive Date: 20181030
  Receipt Date: 20190118
  Transmission Date: 20190417
  Serious: Yes (Hospitalization)
  Sender: FDA-Public Use
  Company Number: US-JNJFOC-20181032893

PATIENT
  Age: 56 Year
  Sex: Male
  Weight: 58.06 kg

DRUGS (14)
  1. TYLENOL [Concomitant]
     Active Substance: ACETAMINOPHEN
     Indication: ARTHRALGIA
     Route: 048
  2. HCTZ [Concomitant]
     Active Substance: HYDROCHLOROTHIAZIDE
     Indication: HYPERTENSION
     Route: 048
  3. TENORMIN [Concomitant]
     Active Substance: ATENOLOL
     Indication: HYPERTENSION
     Route: 048
  4. VITAMIN D3 [Concomitant]
     Active Substance: CHOLECALCIFEROL
     Route: 048
  5. PRINIVIL [Concomitant]
     Active Substance: LISINOPRIL
     Indication: HYPERTENSION
     Route: 048
  6. ZESTRIL [Concomitant]
     Active Substance: LISINOPRIL
     Indication: HYPERTENSION
     Route: 048
  7. MAG OXIDE [Concomitant]
     Active Substance: MAGNESIUM OXIDE
     Route: 048
  8. XARELTO [Suspect]
     Active Substance: RIVAROXABAN
     Indication: PULMONARY EMBOLISM
     Route: 048
     Dates: start: 201712, end: 20181001
  9. SAW PALMETTO [Concomitant]
     Active Substance: HERBALS\SAW PALMETTO
     Dosage: 3 TABLETS
     Route: 048
  10. LIDOCAINE. [Concomitant]
     Active Substance: LIDOCAINE
     Dosage: TO APPLY 2%/ U/ 2%/ APPLY UP TO FOUR TIMES DAILY AS NEEDED
     Route: 061
  11. XYLOCAINE [Concomitant]
     Active Substance: LIDOCAINE HYDROCHLORIDE
     Indication: ANORECTAL DISORDER
     Route: 061
  12. XARELTO [Suspect]
     Active Substance: RIVAROXABAN
     Indication: PULMONARY EMBOLISM
     Dosage: FOR 21 DAYS
     Route: 048
     Dates: start: 20171129, end: 201712
  13. FISH OIL [Concomitant]
     Active Substance: FISH OIL
     Dosage: 2 CAPS, 300-1000 MG
     Route: 048
  14. GLUCOTROL [Concomitant]
     Active Substance: GLIPIZIDE
     Indication: DIABETES MELLITUS
     Dosage: BEFORE MEALS
     Route: 048

REACTIONS (2)
  - Deep vein thrombosis [Recovering/Resolving]
  - Drug ineffective [Unknown]

NARRATIVE: CASE EVENT DATE: 20181001
